FAERS Safety Report 21792465 (Version 1)
Quarter: 2022Q4

REPORT INFORMATION
  Report Type: Other
  Country: US (occurrence: US)
  Receive Date: 20221229
  Receipt Date: 20221229
  Transmission Date: 20230112
  Serious: Yes (Hospitalization, Other)
  Sender: FDA-Public Use
  Company Number: US-DEXPHARM-20222639

PATIENT
  Age: 5 Year
  Sex: Male
  Weight: 22.7 kg

DRUGS (7)
  1. LEVETIRACETAM [Suspect]
     Active Substance: LEVETIRACETAM
     Indication: Status epilepticus
     Dosage: 40 MG/KG
     Route: 040
  2. LORAZEPAM [Suspect]
     Active Substance: LORAZEPAM
     Indication: Status epilepticus
     Route: 040
  3. FOSPHENYTOIN [Concomitant]
     Active Substance: FOSPHENYTOIN
     Indication: Status epilepticus
     Dosage: 20 MG/KG
     Route: 040
  4. MELATONIN [Concomitant]
     Active Substance: MELATONIN
     Indication: Insomnia
  5. DIPHENHYDRAMINE [Concomitant]
     Active Substance: DIPHENHYDRAMINE
     Indication: Insomnia
  6. RISPERIDONE [Concomitant]
     Active Substance: RISPERIDONE
     Indication: Sedation
     Route: 048
  7. DEXMEDETOMIDINE [Concomitant]
     Active Substance: DEXMEDETOMIDINE
     Indication: Sedation
     Dosage: DEXMEDETOMIDINE 2 MCG/KG BOLUS WAS GIVEN OVER 1 HOUR FOLLOWED BY CONTINUOUS INFUSION RANGING FROM...
     Route: 040

REACTIONS (2)
  - Drug ineffective [Recovered/Resolved]
  - Delirium [Recovered/Resolved]
